FAERS Safety Report 6877541-0 (Version None)
Quarter: 2010Q3

REPORT INFORMATION
  Report Type: 
  Country: None (occurrence: None)
  Receive Date: 20100727
  Receipt Date: 20091204
  Transmission Date: 20110219
  Serious: No
  Sender: FDA-Public Use
  Company Number: US-ABBOTT-09P-163-0613351-00

PATIENT
  Sex: Female
  Weight: 48.578 kg

DRUGS (5)
  1. SYNTHROID [Suspect]
     Indication: HYPOTHYROIDISM
     Dosage: VARIOUS DOSES
     Dates: start: 19790101
  2. ISOGENIC DIETARY SUPPLEMENT [Suspect]
     Indication: MEDICAL DIET
     Dates: start: 20090601, end: 20091127
  3. LEVOTHYROXINE [Suspect]
     Indication: HYPOTHYROIDISM
     Dates: start: 20040101, end: 20040101
  4. NORTRIPTYLINE [Concomitant]
     Indication: DEPRESSION
  5. LORAZEPAM [Concomitant]
     Indication: DEPRESSION

REACTIONS (6)
  - AGITATION [None]
  - CHILLS [None]
  - CONSTIPATION [None]
  - FATIGUE [None]
  - FLUSHING [None]
  - INSOMNIA [None]
